FAERS Safety Report 11931544 (Version 4)
Quarter: 2016Q2

REPORT INFORMATION
  Report Type: Spontaneous
  Country: US (occurrence: US)
  Receive Date: 20160120
  Receipt Date: 20160428
  Transmission Date: 20160815
  Serious: Yes (Other)
  Sender: FDA-Public Use
  Company Number: US-INCYTE CORPORATION-2015IN005787

PATIENT
  Age: 80 Year
  Sex: Female

DRUGS (5)
  1. JAKAFI [Suspect]
     Active Substance: RUXOLITINIB
     Dosage: 7.5 MG, QD
     Route: 048
  2. PROLIA [Concomitant]
     Active Substance: DENOSUMAB
     Indication: PRODUCT USED FOR UNKNOWN INDICATION
  3. JAKAFI [Suspect]
     Active Substance: RUXOLITINIB
     Indication: POLYCYTHAEMIA VERA
     Dosage: 5MG QD, ALTERNATING WITH 10MG EVERY OTHER DAY
     Route: 048
     Dates: start: 20150401
  4. IRON [Concomitant]
     Active Substance: IRON
     Indication: PRODUCT USED FOR UNKNOWN INDICATION
     Dosage: UNK
  5. NEXIUM [Concomitant]
     Active Substance: ESOMEPRAZOLE MAGNESIUM
     Indication: PRODUCT USED FOR UNKNOWN INDICATION
     Dosage: UNK

REACTIONS (24)
  - Lung neoplasm malignant [Unknown]
  - Platelet count increased [Unknown]
  - Neck pain [Unknown]
  - Blood iron decreased [Unknown]
  - Red blood cell count decreased [Unknown]
  - Bone disorder [Unknown]
  - Cheilitis [Recovering/Resolving]
  - Respiratory tract infection [Not Recovered/Not Resolved]
  - Chest discomfort [Recovering/Resolving]
  - Musculoskeletal discomfort [Unknown]
  - Herpes zoster [Unknown]
  - Hypoaesthesia oral [Unknown]
  - Balance disorder [Unknown]
  - Pain in jaw [Unknown]
  - Hypoaesthesia [Unknown]
  - Oral pain [Unknown]
  - Nasopharyngitis [Unknown]
  - Squamous cell carcinoma [Unknown]
  - Skin irritation [Unknown]
  - Dyspnoea [Unknown]
  - Asthenia [Unknown]
  - Wrong technique in product usage process [Unknown]
  - Eructation [Unknown]
  - Fatigue [Unknown]

NARRATIVE: CASE EVENT DATE: 201511
